FAERS Safety Report 19625601 (Version 3)
Quarter: 2021Q3

REPORT INFORMATION
  Report Type: Report from Study
  Country: AR (occurrence: AR)
  Receive Date: 20210729
  Receipt Date: 20210804
  Transmission Date: 20211014
  Serious: Yes (Hospitalization, Other)
  Sender: FDA-Public Use
  Company Number: AR-SA-2021SA248168

PATIENT
  Age: 65 Year
  Sex: Male

DRUGS (1)
  1. AGALSIDASE BETA [Suspect]
     Active Substance: AGALSIDASE BETA
     Dosage: 1 MG/KG, QOW
     Route: 041

REACTIONS (6)
  - SARS-CoV-2 test positive [Unknown]
  - Pyrexia [Recovered/Resolved]
  - Umbilical hernia [Recovering/Resolving]
  - Fatigue [Recovered/Resolved]
  - COVID-19 [Unknown]
  - End stage renal disease [Unknown]

NARRATIVE: CASE EVENT DATE: 20210723
